FAERS Safety Report 10042653 (Version 2)
Quarter: 2014Q2

REPORT INFORMATION
  Report Type: Report from Study
  Country: MW (occurrence: MW)
  Receive Date: 20140327
  Receipt Date: 20140513
  Transmission Date: 20141212
  Serious: Yes (Life-Threatening, Hospitalization)
  Sender: FDA-Public Use
  Company Number: MW-BRISTOL-MYERS SQUIBB COMPANY-20571311

PATIENT
  Age: 65 Year
  Sex: Male

DRUGS (10)
  1. EFAVIRENZ TABS [Suspect]
     Indication: HIV INFECTION
     Dates: start: 20140217, end: 20140314
  2. MK-0518 [Suspect]
     Indication: HIV INFECTION
     Route: 048
     Dates: start: 20140217
  3. TENOFOVIR [Suspect]
     Indication: HIV INFECTION
     Route: 048
     Dates: start: 20140217
  4. EMTRICITABINE [Suspect]
     Indication: HIV INFECTION
     Route: 048
     Dates: start: 20140217
  5. NEVIRAPINE [Suspect]
     Indication: HIV INFECTION
     Dates: start: 20140314
  6. GLYBURIDE [Suspect]
     Indication: DIABETES MELLITUS
     Dates: start: 19790630, end: 20140320
  7. CO-TRIMOXAZOLE [Suspect]
     Indication: HIV INFECTION
     Dates: start: 20140131
  8. ENALAPRIL MALEATE [Concomitant]
     Dates: start: 19790630
  9. AMLODIPINE [Concomitant]
     Dates: start: 19790630
  10. METFORMIN [Concomitant]
     Dates: start: 19790630

REACTIONS (1)
  - Hypoglycaemia [Recovered/Resolved]
